FAERS Safety Report 7771163-5 (Version None)
Quarter: 2011Q3

REPORT INFORMATION
  Report Type: 
  Country: None (occurrence: None)
  Receive Date: 20110922
  Receipt Date: 20110629
  Transmission Date: 20111222
  Serious: Yes (Other)
  Sender: FDA-Public Use
  Company Number: US-ASTRAZENECA-2011SE39746

PATIENT
  Age: 74 Year
  Sex: Male
  Weight: 72.6 kg

DRUGS (7)
  1. LISINOPRIL [Concomitant]
     Indication: HYPERTENSION
     Dosage: DAILY
  2. PRAVASTATIN [Concomitant]
     Dosage: DAILY
  3. SEROQUEL [Suspect]
     Route: 048
  4. KLONOPIN [Concomitant]
     Dosage: DAILY
  5. ATENOLOL [Concomitant]
     Indication: HYPERTENSION
     Dosage: DAILY
  6. KEPRA [Concomitant]
     Dosage: DAILY
  7. AMLODIPINE [Concomitant]
     Dosage: DAILY

REACTIONS (2)
  - DRUG DOSE OMISSION [None]
  - CONVULSION [None]
